FAERS Safety Report 4319961-4 (Version None)
Quarter: 2004Q1

REPORT INFORMATION
  Report Type: 
  Country: None (occurrence: None)
  Receive Date: 20040317
  Receipt Date: 20040302
  Transmission Date: 20041129
  Serious: Yes (Death, Hospitalization, Other)
  Sender: FDA-Public Use
  Company Number: A-US2003-03705

PATIENT
  Age: 61 Year
  Sex: Female

DRUGS (6)
  1. TRACLEER [Suspect]
     Indication: PULMONARY HYPERTENSION
     Dosage: SEE IMAGE, ORAL
     Route: 048
     Dates: start: 20030429, end: 20030716
  2. TRACLEER [Suspect]
     Indication: PULMONARY HYPERTENSION
     Dosage: SEE IMAGE, ORAL
     Route: 048
     Dates: start: 20030717, end: 20031205
  3. COUMADIN [Concomitant]
  4. BUMEX [Concomitant]
  5. K-DUR 10 [Concomitant]
  6. SYNTHROID [Concomitant]

REACTIONS (1)
  - CHOLELITHIASIS [None]
